FAERS Safety Report 15827158 (Version 1)
Quarter: 2018Q4

REPORT INFORMATION
  Report Type: Spontaneous
  Country: US (occurrence: US)
  Receive Date: 20181218
  Receipt Date: 20181218
  Transmission Date: 20190205
  Serious: No
  Sender: FDA-Public Use
  Company Number: None

PATIENT
  Age: 68 Year
  Sex: Female

DRUGS (13)
  1. LYRICA [Suspect]
     Active Substance: PREGABALIN
  2. CAPECITABINE 500 MG [Suspect]
     Active Substance: CAPECITABINE
     Indication: RECTAL CANCER
     Dosage: ?          OTHER FREQUENCY:BID M-F;?
     Route: 048
     Dates: start: 20180731
  3. B12  SUB 5000 MCG [Concomitant]
  4. METFORMIN [Concomitant]
     Active Substance: METFORMIN HYDROCHLORIDE
  5. METOPROLOL 37.5 MG [Concomitant]
  6. WOMEN: ONE DAILY [Concomitant]
  7. MAGNESIUM 200MG [Concomitant]
  8. OXYCODONE 10 MG ER [Concomitant]
  9. PRAVASTATIN 20 MG [Concomitant]
     Active Substance: PRAVASTATIN
  10. PANTOPRAZOLE 40 MG [Concomitant]
     Active Substance: PANTOPRAZOLE SODIUM
  11. ASPIRIN 81 MG EC [Suspect]
     Active Substance: ASPIRIN
  12. SPIRNOLACTONE 25 MG [Concomitant]
  13. ISCSORB MONO TAB 30 MG ER [Concomitant]

REACTIONS (1)
  - Rectal haemorrhage [None]

NARRATIVE: CASE EVENT DATE: 201812
